FAERS Safety Report 6106916-2 (Version None)
Quarter: 2009Q1

REPORT INFORMATION
  Report Type: 
  Country: None (occurrence: None)
  Receive Date: 20090309
  Receipt Date: 20090226
  Transmission Date: 20090719
  Serious: Yes (Hospitalization)
  Sender: FDA-Public Use
  Company Number: DE-RANBAXY-2009RR-22187

PATIENT
  Age: 95 Year
  Sex: Female
  Weight: 90 kg

DRUGS (4)
  1. RAMIPRIL BASICS PLUS 2,5MG/12,5MG FILMTABLETTEN [Suspect]
     Dosage: 0.5 DF, UNK
     Route: 048
     Dates: start: 20050101
  2. BISOPROLOL FUMARATE [Suspect]
     Dosage: 1 DF, UNK
     Route: 048
  3. TILIDIN [Concomitant]
     Dosage: 1 DF, UNK
     Route: 048
  4. TORSEMIDE [Concomitant]
     Dosage: 10 MG, UNK

REACTIONS (1)
  - ANGIOEDEMA [None]
